FAERS Safety Report 5411275-4 (Version None)
Quarter: 2007Q3

REPORT INFORMATION
  Report Type: 
  Country: None (occurrence: None)
  Receive Date: 20070808
  Receipt Date: 20070731
  Transmission Date: 20080115
  Serious: Yes (Life-Threatening, Hospitalization)
  Sender: FDA-Public Use
  Company Number: E2090-00284-SPO-JP

PATIENT
  Age: 61 Year
  Sex: Male

DRUGS (2)
  1. ZONISAMIDE [Suspect]
     Indication: CEREBRAL HAEMORRHAGE
     Dosage: 200 MG, 1 IN 1 D, ORAL
     Route: 048
     Dates: start: 20060601, end: 20060701
  2. ZONISAMIDE [Suspect]
     Indication: CONVULSION
     Dosage: 200 MG, 1 IN 1 D, ORAL
     Route: 048
     Dates: start: 20060601, end: 20060701

REACTIONS (2)
  - DRUG HYPERSENSITIVITY [None]
  - TYPE 1 DIABETES MELLITUS [None]
